FAERS Safety Report 15234245 (Version 1)
Quarter: 2018Q3

REPORT INFORMATION
  Report Type: Spontaneous
  Country: US (occurrence: US)
  Receive Date: 20180803
  Receipt Date: 20180803
  Transmission Date: 20181010
  Serious: No
  Sender: FDA-Public Use
  Company Number: US-ASTRAZENECA-2018SE87598

PATIENT
  Age: 66 Year
  Sex: Female
  Weight: 66.7 kg

DRUGS (14)
  1. BRILINTA [Suspect]
     Active Substance: TICAGRELOR
     Indication: MYOCARDIAL INFARCTION
     Route: 048
  2. ECOTRIN [Concomitant]
     Active Substance: ASPIRIN
  3. LOSARTAN. [Concomitant]
     Active Substance: LOSARTAN
  4. LABETALOL [Concomitant]
     Active Substance: LABETALOL\LABETALOL HYDROCHLORIDE
  5. TRESIBA [Concomitant]
     Active Substance: INSULIN DEGLUDEC
  6. JANUVIA [Concomitant]
     Active Substance: SITAGLIPTIN PHOSPHATE
  7. DIOVAN HCT [Concomitant]
     Active Substance: HYDROCHLOROTHIAZIDE\VALSARTAN
  8. GABAPENTIN. [Concomitant]
     Active Substance: GABAPENTIN
  9. NITROGLYCERIN. [Concomitant]
     Active Substance: NITROGLYCERIN
  10. ASPIRIN. [Concomitant]
     Active Substance: ASPIRIN
  11. FENOFIBRATE. [Concomitant]
     Active Substance: FENOFIBRATE
  12. TAMOXIFEN [Concomitant]
     Active Substance: TAMOXIFEN
  13. NOVALOG INSULIN [Concomitant]
  14. PLAVIX [Concomitant]
     Active Substance: CLOPIDOGREL BISULFATE

REACTIONS (5)
  - Dyspnoea [Unknown]
  - Chest pain [Unknown]
  - Cardiac flutter [Unknown]
  - Haemorrhagic diathesis [Unknown]
  - Dizziness [Unknown]
